FAERS Safety Report 4860046-6 (Version None)
Quarter: 2005Q4

REPORT INFORMATION
  Report Type: 
  Country: None (occurrence: None)
  Receive Date: 20051219
  Receipt Date: 20051212
  Transmission Date: 20060501
  Serious: Yes (Death)
  Sender: FDA-Public Use
  Company Number: JP-JNJFOC-20051202295

PATIENT
  Age: 58 Year
  Sex: Male

DRUGS (13)
  1. OFLOCET [Suspect]
     Indication: ENTEROBACTER INFECTION
     Route: 042
     Dates: start: 20050916, end: 20050921
  2. CALCIPARINE [Suspect]
     Indication: DRUG USE FOR UNKNOWN INDICATION
     Route: 058
     Dates: start: 20050912
  3. INIPOMP [Suspect]
     Indication: DRUG USE FOR UNKNOWN INDICATION
     Route: 042
     Dates: start: 20050912
  4. INVANZ [Suspect]
     Indication: DRUG USE FOR UNKNOWN INDICATION
     Route: 042
     Dates: start: 20050918, end: 20050921
  5. TRIATEC [Concomitant]
  6. NOVORAPID INSULINE [Concomitant]
  7. SELOKEN [Concomitant]
  8. ATARAX [Concomitant]
  9. STILNOX [Concomitant]
  10. 1 ALPHA [Concomitant]
  11. CALCIDIA [Concomitant]
  12. ARANESP [Concomitant]
  13. LOXEN [Concomitant]

REACTIONS (7)
  - CARDIO-RESPIRATORY ARREST [None]
  - COMA [None]
  - CONVULSION [None]
  - DIABETES MELLITUS INADEQUATE CONTROL [None]
  - METABOLIC ACIDOSIS [None]
  - MULTI-ORGAN FAILURE [None]
  - THERAPY NON-RESPONDER [None]
